FAERS Safety Report 7059941-1 (Version None)
Quarter: 2010Q4

REPORT INFORMATION
  Report Type: 
  Country: None (occurrence: None)
  Receive Date: 20101025
  Receipt Date: 20101015
  Transmission Date: 20110411
  Serious: Yes (Other)
  Sender: FDA-Public Use
  Company Number: GB-TEVA-252524ISR

PATIENT
  Age: 69 Year
  Sex: Female

DRUGS (4)
  1. AZILECT [Suspect]
     Dates: start: 20100716, end: 20100817
  2. STALEVO 100 [Interacting]
     Indication: PARKINSON'S DISEASE
     Route: 048
  3. STALEVO 100 [Interacting]
     Route: 048
     Dates: start: 20100501, end: 20100909
  4. NORTRIPTYLINE [Concomitant]
     Indication: BURNING MOUTH SYNDROME
     Dates: start: 20090101

REACTIONS (3)
  - BLOOD PRESSURE DECREASED [None]
  - DRUG INTERACTION [None]
  - MALAISE [None]
